FAERS Safety Report 7204092-6 (Version None)
Quarter: 2010Q4

REPORT INFORMATION
  Report Type: 
  Country: None (occurrence: None)
  Receive Date: 20101230
  Receipt Date: 20101220
  Transmission Date: 20110411
  Serious: Yes (Hospitalization)
  Sender: FDA-Public Use
  Company Number: US-ROCHE-603798

PATIENT
  Sex: Male
  Weight: 69.2 kg

DRUGS (4)
  1. BEVACIZUMAB [Suspect]
     Indication: NON-SMALL CELL LUNG CANCER
     Dosage: UNK
     Route: 042
     Dates: end: 20080626
  2. ERLOTINIB [Suspect]
     Indication: NON-SMALL CELL LUNG CANCER
     Dosage: 100 MG, QD
     Route: 048
     Dates: start: 20080306
  3. ATACAND [Concomitant]
     Dosage: 8 MG, QD
  4. METFORMIN [Concomitant]
     Dosage: UNK

REACTIONS (1)
  - BUNDLE BRANCH BLOCK RIGHT [None]
